FAERS Safety Report 4429771-5 (Version None)
Quarter: 2004Q3

REPORT INFORMATION
  Report Type: 
  Country: None (occurrence: None)
  Receive Date: 20040817
  Receipt Date: 20040812
  Transmission Date: 20050211
  Serious: Yes (Other)
  Sender: FDA-Public Use
  Company Number: BET-504-AE

PATIENT
  Sex: Female

DRUGS (1)
  1. BETIMOL [Suspect]
     Dosage: TOPICAL
     Route: 061

REACTIONS (1)
  - NO ADVERSE DRUG EFFECT [None]
